FAERS Safety Report 9669873 (Version 3)
Quarter: 2015Q1

REPORT INFORMATION
  Report Type: Report from Study
  Country: MX (occurrence: MX)
  Receive Date: 20131105
  Receipt Date: 20150209
  Transmission Date: 20150721
  Serious: Yes (Other)
  Sender: FDA-Public Use
  Company Number: PHHY2012MX070000

PATIENT
  Age: 62 Year
  Sex: Female

DRUGS (9)
  1. GLUCOSAMINE [Concomitant]
     Active Substance: GLUCOSAMINE
     Indication: PRODUCT USED FOR UNKNOWN INDICATION
     Dosage: 2 UKN, DAILY
     Route: 065
  2. HYDROLYZED COLLAGEN [Concomitant]
     Indication: PRODUCT USED FOR UNKNOWN INDICATION
     Dosage: 1 DF (ONE PACKET), DAILY
     Route: 065
  3. CO-DIOVAN [Suspect]
     Active Substance: HYDROCHLOROTHIAZIDE\VALSARTAN
     Indication: HYPERTENSION
     Route: 065
  4. DIOVAN [Suspect]
     Active Substance: VALSARTAN
     Indication: HYPERTENSION
     Dosage: 1 DF (160MG), DAILY
     Route: 048
     Dates: start: 20100610
  5. VENALOT DEPOT [Concomitant]
     Indication: PRODUCT USED FOR UNKNOWN INDICATION
     Route: 065
  6. CRESTOR [Concomitant]
     Active Substance: ROSUVASTATIN CALCIUM
     Indication: PRODUCT USED FOR UNKNOWN INDICATION
     Dosage: 1 DF DAILY
     Route: 065
  7. ESPAVEN [Concomitant]
     Indication: PRODUCT USED FOR UNKNOWN INDICATION
     Route: 065
  8. RANITIDINE [Concomitant]
     Active Substance: RANITIDINE\RANITIDINE HYDROCHLORIDE
     Indication: PRODUCT USED FOR UNKNOWN INDICATION
     Route: 065
  9. DIOVAN [Suspect]
     Active Substance: VALSARTAN
     Dosage: 0.5 DF (160MG), DAILY
     Route: 048

REACTIONS (10)
  - Feeling abnormal [Unknown]
  - Weight loss poor [Unknown]
  - VIIth nerve paralysis [Unknown]
  - Blood pressure decreased [Recovered/Resolved]
  - Wrong technique in drug usage process [Not Recovered/Not Resolved]
  - Cartilage injury [Not Recovered/Not Resolved]
  - Gait disturbance [Not Recovered/Not Resolved]
  - Fall [Recovered/Resolved]
  - Spinal column injury [Not Recovered/Not Resolved]
  - Overweight [Unknown]

NARRATIVE: CASE EVENT DATE: 201008
